FAERS Safety Report 9009011 (Version 3)
Quarter: 2013Q2

REPORT INFORMATION
  Report Type: Spontaneous
  Country: US (occurrence: US)
  Receive Date: 20130111
  Receipt Date: 20130416
  Transmission Date: 20140414
  Serious: Yes (Other)
  Sender: FDA-Public Use
  Company Number: US-PFIZER INC-2013012894

PATIENT
  Age: 61 Year
  Sex: Female
  Weight: 88.89 kg

DRUGS (4)
  1. PRISTIQ [Suspect]
     Dosage: 50 MG, UNK
     Dates: start: 2012
  2. PRISTIQ [Suspect]
     Dosage: 100 MG, UNK
  3. CYMBALTA [Suspect]
     Dosage: UNK
     Dates: end: 2012
  4. PROZAC [Concomitant]
     Dosage: UNK

REACTIONS (4)
  - Depression [Unknown]
  - Anxiety [Unknown]
  - Diarrhoea [Unknown]
  - Circumstance or information capable of leading to medication error [Unknown]
